FAERS Safety Report 13756227 (Version 1)
Quarter: 2017Q3

REPORT INFORMATION
  Report Type: Spontaneous
  Country: US (occurrence: US)
  Receive Date: 20170714
  Receipt Date: 20170714
  Transmission Date: 20171127
  Serious: Yes (Other)
  Sender: FDA-Public Use
  Company Number: US-CELGENEUS-USA-20170701044

PATIENT
  Age: 53 Year
  Sex: Female

DRUGS (1)
  1. ABRAXANE [Suspect]
     Active Substance: PACLITAXEL
     Indication: METAPLASTIC BREAST CARCINOMA
     Dosage: 100 MILLIGRAM/SQ. METER
     Route: 041
     Dates: start: 201607

REACTIONS (3)
  - Performance status decreased [Recovering/Resolving]
  - Hypercalcaemia of malignancy [Unknown]
  - Metaplastic breast carcinoma [Recovering/Resolving]
